FAERS Safety Report 7248609-4 (Version None)
Quarter: 2011Q1

REPORT INFORMATION
  Report Type: 
  Country: None (occurrence: None)
  Receive Date: 20110128
  Receipt Date: 20110111
  Transmission Date: 20110831
  Serious: Yes (Disabling)
  Sender: FDA-Public Use
  Company Number: US-BAYER-2011-003731

PATIENT
  Age: 88 Year
  Sex: Male
  Weight: 68 kg

DRUGS (4)
  1. ALEVE (CAPLET) [Suspect]
     Indication: PRODUCT USED FOR UNKNOWN INDICATION
     Dosage: 220 MG, QD
     Route: 048
     Dates: start: 20100101
  2. HYDROXYUREA [Concomitant]
  3. UNCODEABLE ^UNKNOWN MANUFACTURER^ [Concomitant]
  4. ANACIN [PHENAZONE] [Concomitant]

REACTIONS (1)
  - DEAFNESS [None]
